FAERS Safety Report 23609222 (Version 2)
Quarter: 2024Q2

REPORT INFORMATION
  Report Type: Spontaneous
  Country: CA (occurrence: CA)
  Receive Date: 20240308
  Receipt Date: 20240419
  Transmission Date: 20240716
  Serious: Yes (Death)
  Sender: FDA-Public Use
  Company Number: CA-TEVA-VS-3164265

PATIENT
  Age: 25 Year
  Sex: Female

DRUGS (8)
  1. TOPIRAMATE [Suspect]
     Active Substance: TOPIRAMATE
     Indication: Seizure
     Dosage: DOSE FORM: NOT SPECIFIED
     Route: 065
  2. CARBAMAZEPINE [Suspect]
     Active Substance: CARBAMAZEPINE
     Indication: Seizure
     Dosage: DOSE FORM: NOT SPECIFIED
     Route: 065
  3. CLOBAZAM [Suspect]
     Active Substance: CLOBAZAM
     Indication: Seizure
     Route: 065
  4. LACOSAMIDE [Suspect]
     Active Substance: LACOSAMIDE
     Indication: Seizure
     Route: 065
  5. LAMOTRIGINE [Suspect]
     Active Substance: LAMOTRIGINE
     Indication: Seizure
     Route: 065
  6. LEVETIRACETAM [Suspect]
     Active Substance: LEVETIRACETAM
     Indication: Seizure
     Dosage: DOSE FORM: NOT SPECIFIED
     Route: 065
  7. VALPROIC ACID [Suspect]
     Active Substance: VALPROIC ACID
     Indication: Seizure
     Dosage: DOSE FORM: NOT SPECIFIED
     Route: 065
  8. FYCOMPA [Suspect]
     Active Substance: PERAMPANEL
     Indication: Seizure
     Route: 048

REACTIONS (2)
  - Multiple-drug resistance [Fatal]
  - General physical health deterioration [Fatal]
